FAERS Safety Report 25489689 (Version 1)
Quarter: 2025Q2

REPORT INFORMATION
  Report Type: Report from Study
  Country: US (occurrence: US)
  Receive Date: 20250627
  Receipt Date: 20250627
  Transmission Date: 20250716
  Serious: Yes (Other)
  Sender: PFIZER
  Company Number: US-PFIZER INC-202400305850

PATIENT
  Age: 85 Year
  Sex: Female
  Weight: 97.5 kg

DRUGS (35)
  1. LORBRENA [Suspect]
     Active Substance: LORLATINIB
     Indication: Lung neoplasm malignant
     Dosage: FOR 30 DAYS, SWALLOW WHOLE
     Route: 048
     Dates: start: 20210520
  2. ALLOPURINOL [Concomitant]
     Active Substance: ALLOPURINOL
  3. AMIODARONE [Concomitant]
     Active Substance: AMIODARONE
  4. ELIQUIS [Concomitant]
     Active Substance: APIXABAN
  5. ASPIRIN [Concomitant]
     Active Substance: ASPIRIN
  6. ATENOLOL [Concomitant]
     Active Substance: ATENOLOL
  7. CALCIUM CARBONATE [Concomitant]
     Active Substance: CALCIUM CARBONATE
  8. CHOLECALCIFEROL [Concomitant]
     Active Substance: CHOLECALCIFEROL
  9. CALTRATE WITH VITAMIN D [Concomitant]
     Active Substance: CALCIUM CARBONATE\CHOLECALCIFEROL
  10. COLACE [Concomitant]
     Active Substance: DOCUSATE SODIUM
  11. XGEVA [Concomitant]
     Active Substance: DENOSUMAB
  12. DOXYCYCLINE HYCLATE [Concomitant]
     Active Substance: DOXYCYCLINE HYCLATE
  13. ESOMEPRAZOLE [Concomitant]
     Active Substance: ESOMEPRAZOLE
  14. EZETIMIBE [Concomitant]
     Active Substance: EZETIMIBE
  15. FLUAD QUADRIVALENT 2020/2021 [Concomitant]
     Active Substance: INFLUENZA A VIRUS A/HONG KONG/2671/2019 IVR-208 (H3N2) ANTIGEN (FORMALDEHYDE INACTIVATED)\INFLUENZA
     Dates: start: 2023, end: 2024
  16. FUROSEMIDE [Concomitant]
     Active Substance: FUROSEMIDE
  17. GABAPENTIN [Concomitant]
     Active Substance: GABAPENTIN
  18. HYDROCHLOROTHIAZIDE [Concomitant]
     Active Substance: HYDROCHLOROTHIAZIDE
  19. HYDROMORPHONE [Concomitant]
     Active Substance: HYDROMORPHONE
  20. LEVOTHYROXINE [Concomitant]
     Active Substance: LEVOTHYROXINE
  21. MAGNESIUM [Concomitant]
     Active Substance: MAGNESIUM
  22. METFORMIN [Concomitant]
     Active Substance: METFORMIN HYDROCHLORIDE
  23. METOPROLOL SUCCINATE [Concomitant]
     Active Substance: METOPROLOL SUCCINATE
  24. MUPIROCIN [Concomitant]
     Active Substance: MUPIROCIN
  25. OMEGA-3 FATTY ACIDS [Concomitant]
     Active Substance: OMEGA-3 FATTY ACIDS
  26. TYLENOL [Concomitant]
     Active Substance: ACETAMINOPHEN
  27. POTASSIUM [Concomitant]
     Active Substance: POTASSIUM
  28. SENOKOT [Concomitant]
     Active Substance: SENNOSIDES
  29. PRIORIX [Concomitant]
     Active Substance: MEASLES-MUMPS-RUBELLA VIRUS VACCINE
  30. TORSEMIDE [Concomitant]
     Active Substance: TORSEMIDE
  31. TRIAMCINOLONE [Concomitant]
     Active Substance: TRIAMCINOLONE
  32. VITAMIN B12 [Concomitant]
     Active Substance: CYANOCOBALAMIN
  33. VITAMIN D3 [Concomitant]
     Active Substance: CHOLECALCIFEROL
  34. ATORVASTATIN [Concomitant]
     Active Substance: ATORVASTATIN
  35. POTASSIUM CHLORIDE [Concomitant]
     Active Substance: POTASSIUM CHLORIDE

REACTIONS (11)
  - Type 2 diabetes mellitus [Unknown]
  - Peripheral swelling [Unknown]
  - Pain in extremity [Unknown]
  - Erythema [Unknown]
  - Ageusia [Unknown]
  - Anosmia [Unknown]
  - Impaired healing [Unknown]
  - Scratch [Unknown]
  - Scab [Unknown]
  - Dry skin [Not Recovered/Not Resolved]
  - Product dose omission issue [Unknown]
